FAERS Safety Report 6984667-X (Version None)
Quarter: 2010Q3

REPORT INFORMATION
  Report Type: 
  Country: None (occurrence: None)
  Receive Date: 20100914
  Receipt Date: 20100914
  Transmission Date: 20110219
  Serious: Yes (Other)
  Sender: FDA-Public Use
  Company Number: None

PATIENT

DRUGS (1)
  1. CREST PRO-HEALTH ENAMEL SHIELD RINSE [Suspect]
     Indication: TOOTH DISORDER
     Dates: start: 20100616, end: 20100627

REACTIONS (2)
  - ENAMEL ANOMALY [None]
  - TOOTH LOSS [None]
